FAERS Safety Report 5145249-8 (Version None)
Quarter: 2006Q4

REPORT INFORMATION
  Report Type: 
  Country: None (occurrence: None)
  Receive Date: 20061107
  Receipt Date: 20060228
  Transmission Date: 20070319
  Serious: Yes (Other)
  Sender: FDA-Public Use
  Company Number: JP-ELI_LILLY_AND_COMPANY-JP200603000649

PATIENT
  Age: 72 Year
  Sex: Female
  Weight: 42 kg

DRUGS (5)
  1. KERLONG [Concomitant]
     Dosage: 5 MG, DAILY (1/D)
     Route: 048
     Dates: start: 19960319
  2. ALFACALCIDOL [Concomitant]
     Route: 048
  3. EBASTEL [Concomitant]
     Dosage: 5 MG, DAILY (1/D)
     Route: 048
     Dates: start: 20040514
  4. ALTAT [Concomitant]
     Route: 048
     Dates: start: 20010216
  5. EVISTA [Suspect]
     Indication: OSTEOPOROSIS
     Dosage: 60 MG, DAILY (1/D)
     Route: 048
     Dates: start: 20051003, end: 20051005

REACTIONS (3)
  - AGEUSIA [None]
  - ANOREXIA [None]
  - NAUSEA [None]
